FAERS Safety Report 24603178 (Version 1)
Quarter: 2024Q4

REPORT INFORMATION
  Report Type: Spontaneous
  Country: US (occurrence: None)
  Receive Date: 20241108
  Receipt Date: 20241108
  Transmission Date: 20250114
  Serious: No
  Sender: Public
  Company Number: None

PATIENT
  Age: 69 Year
  Sex: Female

DRUGS (2)
  1. MYCOPHENOLATE MOFETIL [Suspect]
     Active Substance: MYCOPHENOLATE MOFETIL
     Indication: Renal transplant
     Dosage: 1000MG TWICE DAILY ORAL?
     Route: 048
     Dates: start: 20230223, end: 20230508
  2. TACROLIMUS [Suspect]
     Active Substance: TACROLIMUS
     Indication: Renal transplant
     Dosage: 1MG TWICE DAILY ORAL?
     Route: 048
     Dates: start: 20230223

REACTIONS (2)
  - Full blood count abnormal [None]
  - Ill-defined disorder [None]

NARRATIVE: CASE EVENT DATE: 20230508
